FAERS Safety Report 10936577 (Version 4)
Quarter: 2015Q1

REPORT INFORMATION
  Report Type: Spontaneous
  Country: US (occurrence: None)
  Receive Date: 20150212
  Receipt Date: 20150212
  Transmission Date: 20150721
  Serious: No
  Sender: FDA-Public Use
  Company Number: TPA2011A00018

PATIENT
  Age: 6 Decade
  Sex: Female

DRUGS (1)
  1. ULORIC [Suspect]
     Active Substance: FEBUXOSTAT
     Indication: GOUT

REACTIONS (4)
  - Fall [None]
  - Rheumatoid arthritis [None]
  - Hypertension [None]
  - Cyst [None]
